FAERS Safety Report 10932458 (Version 3)
Quarter: 2016Q2

REPORT INFORMATION
  Report Type: Spontaneous
  Country: US (occurrence: US)
  Receive Date: 20150320
  Receipt Date: 20160608
  Transmission Date: 20160815
  Serious: Yes (Other)
  Sender: FDA-Public Use
  Company Number: US-JNJFOC-20140510366

PATIENT
  Sex: Male

DRUGS (1)
  1. RISPERDAL [Suspect]
     Active Substance: RISPERIDONE
     Indication: AUTISM
     Route: 065

REACTIONS (5)
  - Appetite disorder [Unknown]
  - Gynaecomastia [Unknown]
  - Memory impairment [Unknown]
  - Autism [Unknown]
  - Depressed mood [Unknown]
